FAERS Safety Report 6573384-6 (Version None)
Quarter: 2010Q1

REPORT INFORMATION
  Report Type: 
  Country: None (occurrence: None)
  Receive Date: 20100204
  Receipt Date: 20100204
  Transmission Date: 20100710
  Serious: Yes (Other)
  Sender: FDA-Public Use
  Company Number: None

PATIENT
  Age: 69 Year
  Sex: Female
  Weight: 72.5755 kg

DRUGS (2)
  1. TRAMADOL HYDROCHLORIDE AND ACETAMINOPHEN [Suspect]
     Indication: PERIARTHRITIS
     Dosage: 1-2 AS NEEDED - FOR PAIN
     Dates: start: 20100112
  2. TRAMADOL HYDROCHLORIDE AND ACETAMINOPHEN [Suspect]
     Indication: PERIARTHRITIS
     Dosage: 1-2 AS NEEDED - FOR PAIN
     Dates: start: 20100114

REACTIONS (2)
  - BLOOD PRESSURE INCREASED [None]
  - VOMITING [None]
